FAERS Safety Report 12219873 (Version 2)
Quarter: 2016Q2

REPORT INFORMATION
  Report Type: Report from Study
  Country: FR (occurrence: FR)
  Receive Date: 20160330
  Receipt Date: 20160513
  Transmission Date: 20160815
  Serious: Yes (Hospitalization)
  Sender: FDA-Public Use
  Company Number: FR-BEH-2016060433

PATIENT
  Age: 9 Year
  Sex: Female
  Weight: 30 kg

DRUGS (8)
  1. VIALEBEX [Suspect]
     Active Substance: ALBUMIN HUMAN
     Indication: TOXIC SHOCK SYNDROME STAPHYLOCOCCAL
     Dosage: 2 G/KG, 6 UI [UI [6 DOSAGE FORMS CONCLUDED BY COMPANY]]
     Route: 042
     Dates: start: 20160305
  2. MORPHINE [Concomitant]
     Active Substance: MORPHINE
     Indication: PRODUCT USED FOR UNKNOWN INDICATION
  3. DALACINE [Concomitant]
     Active Substance: CLINDAMYCIN HYDROCHLORIDE
     Dosage: 4 X / DAY, DAILY DOSE: 300 MG
     Dates: start: 20160313
  4. AMOXICILLINE [Concomitant]
     Active Substance: AMOXICILLIN
     Indication: PRODUCT USED FOR UNKNOWN INDICATION
     Dosage: 3 INJECTIONS, 3 X / DAY, DAILY DOSE: 1500 MG
     Dates: start: 20160313
  5. PERFALGAN [Concomitant]
     Active Substance: ACETAMINOPHEN
     Indication: PRODUCT USED FOR UNKNOWN INDICATION
     Dosage: 4 X / DAY, DAILY DOSE: 500 MG
  6. PRIVIGEN [Suspect]
     Active Substance: HUMAN IMMUNOGLOBULIN G
     Indication: TOXIC SHOCK SYNDROME STREPTOCOCCAL
     Dosage: 2 G/KG, 6 UI [UI [6 DOSAGE FORMS CONCLUDED BY COMPANY]]
     Route: 042
     Dates: start: 20160305
  7. DALACINE [Concomitant]
     Active Substance: CLINDAMYCIN HYDROCHLORIDE
     Indication: PRODUCT USED FOR UNKNOWN INDICATION
     Route: 042
     Dates: start: 20160305, end: 20160310
  8. ROCEPHINE [Concomitant]
     Active Substance: CEFTRIAXONE SODIUM
     Indication: PRODUCT USED FOR UNKNOWN INDICATION
     Route: 042
     Dates: start: 20160304, end: 20160306

REACTIONS (1)
  - Pleural effusion [Recovered/Resolved]

NARRATIVE: CASE EVENT DATE: 20160311
